FAERS Safety Report 23639697 (Version 1)
Quarter: 2024Q1

REPORT INFORMATION
  Report Type: Spontaneous
  Country: US (occurrence: US)
  Receive Date: 20240316
  Receipt Date: 20240316
  Transmission Date: 20240409
  Serious: Yes (Other)
  Sender: FDA-Public Use
  Company Number: US-TEVA-VS-3142282

PATIENT

DRUGS (6)
  1. NUVIGIL [Suspect]
     Active Substance: ARMODAFINIL
     Indication: Physical fitness training
     Route: 065
  2. NUVIGIL [Suspect]
     Active Substance: ARMODAFINIL
     Indication: Physical fitness training
     Route: 065
  3. NUVIGIL [Suspect]
     Active Substance: ARMODAFINIL
     Indication: Physical fitness training
     Route: 065
  4. NUVIGIL [Suspect]
     Active Substance: ARMODAFINIL
     Indication: Physical fitness training
     Route: 065
  5. NUVIGIL [Suspect]
     Active Substance: ARMODAFINIL
     Indication: Physical fitness training
     Route: 065
  6. NUVIGIL [Suspect]
     Active Substance: ARMODAFINIL
     Indication: Physical fitness training
     Route: 065

REACTIONS (2)
  - Drug abuse [Unknown]
  - Drug diversion [Unknown]
